FAERS Safety Report 20191156 (Version 1)
Quarter: 2021Q4

REPORT INFORMATION
  Report Type: Spontaneous
  Country: US (occurrence: US)
  Receive Date: 20211216
  Receipt Date: 20211216
  Transmission Date: 20220303
  Serious: No
  Sender: FDA-Public Use
  Company Number: US-CADILA HEALTHCARE LIMITED-US-ZYDUS-069418

PATIENT

DRUGS (2)
  1. ATORVASTATIN [Suspect]
     Active Substance: ATORVASTATIN
     Indication: Product used for unknown indication
     Dosage: 10 MILLIGRAM
     Route: 048
  2. ALENDRONATE SODIUM [Concomitant]
     Active Substance: ALENDRONATE SODIUM
     Indication: Product used for unknown indication
     Dosage: 70 MILLIGRAM, ONCE A WEEK
     Route: 048

REACTIONS (5)
  - Malaise [Unknown]
  - Myalgia [Unknown]
  - Headache [Unknown]
  - Rhinorrhoea [Unknown]
  - Feeling of body temperature change [Unknown]

NARRATIVE: CASE EVENT DATE: 20210801
